APPROVED DRUG PRODUCT: ZIPRASIDONE HYDROCHLORIDE
Active Ingredient: ZIPRASIDONE HYDROCHLORIDE
Strength: EQ 40MG BASE
Dosage Form/Route: CAPSULE;ORAL
Application: A077562 | Product #002 | TE Code: AB
Applicant: SANDOZ INC
Approved: Jun 1, 2012 | RLD: No | RS: No | Type: RX